FAERS Safety Report 13419676 (Version 1)
Quarter: 2017Q2

REPORT INFORMATION
  Report Type: Spontaneous
  Country: US (occurrence: US)
  Receive Date: 20170407
  Receipt Date: 20170407
  Transmission Date: 20170830
  Serious: No
  Sender: FDA-Public Use
  Company Number: US-B.I. PHARMACEUTICALS,INC./RIDGEFIELD-2017-BI-019349

PATIENT
  Age: 79 Year
  Sex: Male

DRUGS (1)
  1. GILOTRIF [Suspect]
     Active Substance: AFATINIB
     Indication: NEOPLASM MALIGNANT
     Dosage: ONE TABLET ONCE A DAY;  FORM STRENGTH: 30 MG; FORMULATION: TABLET? ADMINISTRATION CORRECT? NR(NOT RE
     Route: 048
     Dates: start: 20170329

REACTIONS (3)
  - Off label use [Unknown]
  - Diarrhoea [Unknown]
  - Constipation [Not Recovered/Not Resolved]

NARRATIVE: CASE EVENT DATE: 20170329
